FAERS Safety Report 24705528 (Version 1)
Quarter: 2024Q4

REPORT INFORMATION
  Report Type: Spontaneous
  Country: SG (occurrence: SG)
  Receive Date: 20241206
  Receipt Date: 20241206
  Transmission Date: 20250114
  Serious: Yes (Other)
  Sender: SANOFI AVENTIS
  Company Number: SG-ASTELLAS-2024-AER-023006

PATIENT
  Age: 70 Year
  Sex: Male

DRUGS (1)
  1. TAMSULOSIN HYDROCHLORIDE [Suspect]
     Active Substance: TAMSULOSIN HYDROCHLORIDE
     Indication: Product used for unknown indication
     Dosage: UNK
     Route: 065

REACTIONS (1)
  - Angioedema [Unknown]

NARRATIVE: CASE EVENT DATE: 20240715
